FAERS Safety Report 9791871 (Version 3)
Quarter: 2014Q1

REPORT INFORMATION
  Report Type: Spontaneous
  Country: US (occurrence: US)
  Receive Date: 20140102
  Receipt Date: 20140207
  Transmission Date: 20141002
  Serious: No
  Sender: FDA-Public Use
  Company Number: US-PFIZER INC-2013374204

PATIENT
  Age: 63 Year
  Sex: Female

DRUGS (8)
  1. XELJANZ [Suspect]
     Indication: RHEUMATOID ARTHRITIS
     Dosage: 5 MG, 2X/DAY
     Route: 048
     Dates: start: 20131023
  2. SYNTHROID [Concomitant]
     Dosage: UNK
  3. DICLOFENAC [Concomitant]
     Dosage: UNK
  4. MISOPROSTOL [Concomitant]
     Dosage: UNK
  5. NYSTATIN [Concomitant]
     Dosage: UNK
  6. CALCIUM + D [Concomitant]
     Dosage: UNK
  7. VALTREX [Concomitant]
     Dosage: UNK
  8. VITAMIN B12 [Concomitant]
     Dosage: UNK

REACTIONS (1)
  - Oral fungal infection [Recovered/Resolved]
